FAERS Safety Report 5510072-9 (Version None)
Quarter: 2007Q4

REPORT INFORMATION
  Report Type: 
  Country: None (occurrence: None)
  Receive Date: 20071108
  Receipt Date: 20071026
  Transmission Date: 20080405
  Serious: No
  Sender: FDA-Public Use
  Company Number: US-ABBOTT-07P-163-0375719-00

PATIENT
  Sex: Female
  Weight: 49.94 kg

DRUGS (4)
  1. BIAXIN FILMTABS [Suspect]
     Indication: EAR PAIN
     Route: 048
     Dates: start: 20070411, end: 20070416
  2. BIAXIN FILMTABS [Suspect]
     Indication: THROAT IRRITATION
  3. FOSOMAX [Concomitant]
     Indication: DRUG USE FOR UNKNOWN INDICATION
     Route: 048
  4. CALCIUM CARBONATE [Concomitant]
     Indication: DRUG USE FOR UNKNOWN INDICATION
     Route: 048

REACTIONS (1)
  - DYSGEUSIA [None]
